FAERS Safety Report 16053103 (Version 2)
Quarter: 2019Q1

REPORT INFORMATION
  Report Type: Spontaneous
  Country: DE (occurrence: DE)
  Receive Date: 20190308
  Receipt Date: 20190322
  Transmission Date: 20190418
  Serious: Yes (Life-Threatening)
  Sender: FDA-Public Use
  Company Number: DE-GLAXOSMITHKLINE-DE2019GSK036114

PATIENT
  Age: 70 Year
  Sex: Female
  Weight: 69 kg

DRUGS (1)
  1. RELVAR ELLIPTA [Suspect]
     Active Substance: FLUTICASONE FUROATE\VILANTEROL TRIFENATATE
     Indication: ASTHMA
     Dosage: UNK UNK, QD

REACTIONS (2)
  - Product complaint [Unknown]
  - Bronchospasm [Recovered/Resolved]

NARRATIVE: CASE EVENT DATE: 20190222
